FAERS Safety Report 12618696 (Version 2)
Quarter: 2016Q3

REPORT INFORMATION
  Report Type: Spontaneous
  Country: US (occurrence: US)
  Receive Date: 20160803
  Receipt Date: 20160923
  Transmission Date: 20161109
  Serious: Yes (Hospitalization, Other)
  Sender: FDA-Public Use
  Company Number: US-AMGEN-USASP2016098175

PATIENT
  Age: 44 Year
  Sex: Female
  Weight: 69.4 kg

DRUGS (28)
  1. FLONASE [Concomitant]
     Active Substance: FLUTICASONE PROPIONATE
     Dosage: 50 MUG, UNK
  2. NEPHRO VITE RX [Concomitant]
     Active Substance: ASCORBIC ACID\BIOTIN\CALCIUM PANTOTHENATE\CYANOCOBALAMIN\FOLIC ACID\NIACINAMIDE\PYRIDOXINE HYDROCHLORIDE\RIBOFLAVIN\THIAMINE MONONITRATE
     Dosage: 0.8 MG, UNK
  3. LOPRESSOR [Concomitant]
     Active Substance: METOPROLOL TARTRATE
     Dosage: 100 MG, UNK
  4. CELLCEPT [Concomitant]
     Active Substance: MYCOPHENOLATE MOFETIL\MYCOPHENOLATE MOFETIL HYDROCHLORIDE
     Dosage: 500 MG, UNK
  5. CATAPRES [Concomitant]
     Active Substance: CLONIDINE HYDROCHLORIDE
     Dosage: 0.3 MG, UNK
  6. ARANESP [Suspect]
     Active Substance: DARBEPOETIN ALFA
     Indication: ANAEMIA
     Dosage: UNK
     Route: 058
  7. PROCRIT [Concomitant]
     Active Substance: ERYTHROPOIETIN
     Indication: PRODUCT USED FOR UNKNOWN INDICATION
     Dosage: 20.000 UNIT, QWK
     Route: 065
     Dates: start: 201602
  8. LASIX [Concomitant]
     Active Substance: FUROSEMIDE
     Dosage: 40 MG, UNK
  9. KLONOPIN [Concomitant]
     Active Substance: CLONAZEPAM
     Dosage: 0.5 MG, UNK
  10. APRESOLINE HYDROCHLORIDE [Concomitant]
     Active Substance: HYDRALAZINE HYDROCHLORIDE
     Dosage: 100 MG, UNK
  11. DELTASONE [Concomitant]
     Active Substance: PREDNISONE
     Dosage: 5 MG, UNK
  12. ROCALTROL [Concomitant]
     Active Substance: CALCITRIOL
     Dosage: 0.25 MUG, UNK
  13. CARAFATE [Concomitant]
     Active Substance: SUCRALFATE
     Dosage: 1 G, UNK
  14. DULERA [Concomitant]
     Active Substance: FORMOTEROL FUMARATE DIHYDRATE\MOMETASONE FUROATE
     Dosage: 100-5 MCG
  15. ZESTRIL [Concomitant]
     Active Substance: LISINOPRIL
     Dosage: 20 MG, UNK
  16. SINGULAIR [Concomitant]
     Active Substance: MONTELUKAST SODIUM
     Dosage: 10 MG, UNK
  17. PROGRAF [Concomitant]
     Active Substance: TACROLIMUS\TACROLIMUS ANHYDROUS
     Dosage: 0.5 MG, UNK
  18. CARDENE [Concomitant]
     Active Substance: NICARDIPINE HYDROCHLORIDE
     Dosage: 30 MG, UNK
  19. AMBIEN [Concomitant]
     Active Substance: ZOLPIDEM TARTRATE
     Dosage: 10 MG, UNK
  20. PULMICORT TURBUHALER [Concomitant]
     Active Substance: BUDESONIDE
     Dosage: 0.5 MG/2 ML, UNK
  21. CARDURA [Concomitant]
     Active Substance: DOXAZOSIN MESYLATE
     Dosage: 8 MG, UNK
  22. FERROUS SULFATE. [Concomitant]
     Active Substance: FERROUS SULFATE
     Dosage: 325 MG, UNK
  23. SODIUM BICARBONATE. [Concomitant]
     Active Substance: SODIUM BICARBONATE
     Dosage: 648 MG, UNK
  24. NORCO [Concomitant]
     Active Substance: ACETAMINOPHEN\HYDROCODONE BITARTRATE
     Dosage: 325 MG, UNK
  25. FLORANEX [Concomitant]
     Active Substance: LACTOBACILLUS ACIDOPHILUS\LACTOBACILLUS DELBRUECKII SUBSP. BULGARICUS
     Dosage: 1 MILLION CELL
  26. PROTONIX [Concomitant]
     Active Substance: PANTOPRAZOLE SODIUM
     Dosage: 40 MG, UNK
  27. KAYEXALATE [Concomitant]
     Active Substance: SODIUM POLYSTYRENE SULFONATE
     Dosage: 15 G/60 ML, UNK
  28. PRINIVIL [Concomitant]
     Active Substance: LISINOPRIL
     Dosage: 20 MG, UNK

REACTIONS (21)
  - Hyperkalaemia [Unknown]
  - Hypertensive crisis [Unknown]
  - Metabolic acidosis [Unknown]
  - Clostridium difficile colitis [Unknown]
  - Tracheobronchitis [Unknown]
  - Constipation [Unknown]
  - Headache [Unknown]
  - Hypertension [Unknown]
  - Drug effect decreased [Unknown]
  - Pneumonia pseudomonal [Unknown]
  - Pneumonia [Unknown]
  - Haemoglobin abnormal [Unknown]
  - Pyrexia [Unknown]
  - Feeling abnormal [Unknown]
  - Abdominal pain [Unknown]
  - Pancreatitis [Unknown]
  - Tachycardia [Unknown]
  - Cough [Unknown]
  - Anxiety [Unknown]
  - Dyspnoea [Unknown]
  - Hypotension [Unknown]
